FAERS Safety Report 15037020 (Version 3)
Quarter: 2018Q3

REPORT INFORMATION
  Report Type: Report from Study
  Country: US (occurrence: US)
  Receive Date: 20180620
  Receipt Date: 20180914
  Transmission Date: 20181010
  Serious: Yes (Hospitalization, Other)
  Sender: FDA-Public Use
  Company Number: US-TAKEDA-2018TUS019816

PATIENT
  Sex: Male

DRUGS (1)
  1. PONATINIB [Suspect]
     Active Substance: PONATINIB
     Indication: ACUTE LYMPHOCYTIC LEUKAEMIA (IN REMISSION)
     Dosage: 45 MG, QD
     Route: 048
     Dates: start: 201804

REACTIONS (6)
  - Urinary tract obstruction [Unknown]
  - Paraplegia [Unknown]
  - Hypoaesthesia [Unknown]
  - Gait inability [Unknown]
  - Gastric dilatation [Unknown]
  - Muscle spasms [Unknown]
